FAERS Safety Report 10738439 (Version 1)
Quarter: 2015Q1

REPORT INFORMATION
  Report Type: Spontaneous
  Country: HR (occurrence: HR)
  Receive Date: 20150126
  Receipt Date: 20150126
  Transmission Date: 20150721
  Serious: Yes (Hospitalization)
  Sender: FDA-Public Use
  Company Number: HR-ACTAVIS-2015-00469

PATIENT
  Age: 74 Year
  Sex: Male
  Weight: 78.5 kg

DRUGS (2)
  1. GITRABIN [Suspect]
     Active Substance: GEMCITABINE HYDROCHLORIDE
     Indication: LUNG NEOPLASM MALIGNANT
     Dosage: 1500 MG, 1/WEEK
     Route: 042
     Dates: start: 20140423, end: 20140430
  2. CISPLATIN PFIZER [Suspect]
     Active Substance: CISPLATIN
     Indication: LUNG NEOPLASM MALIGNANT
     Dosage: 110 MG, DAILY
     Route: 042
     Dates: start: 20140423, end: 20140423

REACTIONS (1)
  - Pancytopenia [Recovered/Resolved]

NARRATIVE: CASE EVENT DATE: 20140508
